FAERS Safety Report 7632552 (Version 10)
Quarter: 2013Q1

REPORT INFORMATION
  Report Type: Spontaneous
  Country: US (occurrence: US)
  Receive Date: 20101018
  Receipt Date: 20130125
  Transmission Date: 20140127
  Serious: Yes (Hospitalization, Congenital Anomaly, Other)
  Sender: FDA-Public Use
  Company Number: US-PFIZER INC-2010128168

PATIENT
  Sex: Female
  Weight: 3 kg

DRUGS (10)
  1. ZOLOFT [Suspect]
     Dosage: 50 MG
     Route: 064
     Dates: start: 20050126, end: 20070312
  2. AMOXICILLIN [Concomitant]
     Dosage: 250 MG, 2X/DAY
     Route: 064
     Dates: start: 20060323
  3. KETOCONAZOLE [Concomitant]
     Dosage: 2 %
     Route: 064
     Dates: start: 20051209
  4. METOCLOPRAM [Concomitant]
     Dosage: 10 MG, UNK
     Route: 064
     Dates: start: 20060403
  5. FORTAMET [Concomitant]
     Dosage: 1000 MG, 1X/DAY
     Route: 064
     Dates: start: 20060222
  6. PRENATE ELITE [Concomitant]
     Dosage: UNK, ONE TABLET ONCE DAILY
     Route: 064
     Dates: start: 20060403
  7. PROMETHAZINE [Concomitant]
     Dosage: 25 MG, 4X/DAY
     Route: 064
     Dates: start: 20060403
  8. SYNTHROID [Concomitant]
     Dosage: 150 UG, 1X/DAY
     Route: 064
     Dates: start: 20050901
  9. SERTRALINE [Concomitant]
     Dosage: 50 MG, 1X/DAY
     Route: 064
     Dates: start: 20061025, end: 20071109
  10. GYNAZOLE [Concomitant]
     Dosage: 2 %, UNK
     Route: 064
     Dates: start: 20060329

REACTIONS (13)
  - Foetal exposure during pregnancy [Unknown]
  - Ventricular septal defect [Recovered/Resolved]
  - Atrial septal defect [Unknown]
  - Patent ductus arteriosus [Recovered/Resolved]
  - Right ventricular hypertrophy [Unknown]
  - Cardiac failure congestive [Recovered/Resolved]
  - Failure to thrive [Unknown]
  - Tricuspid valve incompetence [Unknown]
  - Cardiomegaly [Recovering/Resolving]
  - Myocardial calcification [Unknown]
  - Congenital anomaly [Unknown]
  - Jaundice neonatal [Unknown]
  - Bundle branch block [Unknown]
